FAERS Safety Report 21697074 (Version 1)
Quarter: 2022Q4

REPORT INFORMATION
  Report Type: Spontaneous
  Country: US (occurrence: US)
  Receive Date: 20221208
  Receipt Date: 20221208
  Transmission Date: 20230113
  Serious: No
  Sender: FDA-Public Use
  Company Number: US-AstraZeneca-2022A385457

PATIENT

DRUGS (1)
  1. TRASTUZUMAB DERUXTECAN [Suspect]
     Active Substance: TRASTUZUMAB DERUXTECAN
     Indication: Product used for unknown indication
     Dosage: 4.4 MG/KG
     Route: 042

REACTIONS (3)
  - Fatigue [Unknown]
  - Nausea [Unknown]
  - Vomiting [Unknown]
